FAERS Safety Report 16676883 (Version 1)
Quarter: 2019Q3

REPORT INFORMATION
  Report Type: Spontaneous
  Country: BR (occurrence: BR)
  Receive Date: 20190807
  Receipt Date: 20190807
  Transmission Date: 20191004
  Serious: Yes (Other)
  Sender: FDA-Public Use
  Company Number: BR-AMGEN-BRASP2019123497

PATIENT
  Age: 30 Year
  Sex: Male

DRUGS (4)
  1. DEXAMETHASONE. [Concomitant]
     Active Substance: DEXAMETHASONE
     Indication: HYPERTHYROIDISM
     Dosage: 8 MILLIGRAM, QD
     Dates: start: 2016
  2. FILGRASTIM [Suspect]
     Active Substance: FILGRASTIM
     Indication: AGRANULOCYTOSIS
     Dosage: 300 MICROGRAM (INITIATED FOR 2 DAYS)
     Route: 065
     Dates: start: 2016
  3. PROPRANOLOL [Concomitant]
     Active Substance: PROPRANOLOL HYDROCHLORIDE
     Indication: BASEDOW^S DISEASE
     Dosage: UNK, QD (80 MILLIGRAM,, 320 MILLIGRAM )
     Dates: start: 2016
  4. DEXCHLORPHENIRAMINE [Concomitant]
     Active Substance: DEXCHLORPHENIRAMINE
     Indication: BASEDOW^S DISEASE
     Dosage: UNK

REACTIONS (2)
  - Off label use [Unknown]
  - Hyperthyroidism [Unknown]

NARRATIVE: CASE EVENT DATE: 2016
